FAERS Safety Report 6421710-0 (Version None)
Quarter: 2009Q4

REPORT INFORMATION
  Report Type: 
  Country: None (occurrence: None)
  Receive Date: 20091030
  Receipt Date: 20091022
  Transmission Date: 20100525
  Serious: Yes (Hospitalization, Other)
  Sender: FDA-Public Use
  Company Number: BR-ABBOTT-09P-020-0564591-00

PATIENT
  Sex: Female
  Weight: 64 kg

DRUGS (7)
  1. DEPAKENE [Suspect]
     Indication: CONVULSION
     Route: 048
     Dates: start: 20090305
  2. DEPAKENE [Suspect]
     Indication: EPILEPSY
  3. GARDENAL [Suspect]
     Indication: CONVULSION
     Route: 048
     Dates: start: 20070101
  4. CARBAMAZEPINE [Suspect]
     Indication: CONVULSION
     Route: 048
  5. DORICO [Concomitant]
     Indication: HEADACHE
     Route: 048
  6. ACETAMINOPHEN [Concomitant]
     Indication: HEADACHE
     Route: 048
  7. BUSCOPAN [Concomitant]
     Indication: ABDOMINAL PAIN UPPER
     Route: 065
     Dates: start: 20090324

REACTIONS (18)
  - ABDOMINAL DISTENSION [None]
  - ABDOMINAL PAIN [None]
  - ABDOMINAL PAIN UPPER [None]
  - AMENORRHOEA [None]
  - BREAST PAIN [None]
  - BREAST SWELLING [None]
  - CONVULSION [None]
  - DYSURIA [None]
  - HEADACHE [None]
  - HORMONE LEVEL ABNORMAL [None]
  - HUNGER [None]
  - LAZINESS [None]
  - NAUSEA [None]
  - OVARIAN INFECTION [None]
  - SOMNOLENCE [None]
  - SYNCOPE [None]
  - VAGINAL HAEMORRHAGE [None]
  - WEIGHT INCREASED [None]
